FAERS Safety Report 8163036-3 (Version None)
Quarter: 2012Q1

REPORT INFORMATION
  Report Type: 
  Country: None (occurrence: None)
  Receive Date: 20120224
  Receipt Date: 20120217
  Transmission Date: 20120608
  Serious: Yes (Other)
  Sender: FDA-Public Use
  Company Number: US-UCBSA-051073

PATIENT
  Age: 45 Year
  Sex: Male
  Weight: 68.9 kg

DRUGS (1)
  1. CIMZIA [Suspect]
     Indication: CROHN'S DISEASE
     Dosage: UNKNOWN
     Route: 058
     Dates: start: 20111222, end: 20120101

REACTIONS (4)
  - ARTHRALGIA [None]
  - RASH GENERALISED [None]
  - DYSPNOEA [None]
  - JOINT SWELLING [None]
